FAERS Safety Report 24219523 (Version 1)
Quarter: 2024Q3

REPORT INFORMATION
  Report Type: Spontaneous
  Country: US (occurrence: US)
  Receive Date: 20240816
  Receipt Date: 20240816
  Transmission Date: 20241017
  Serious: Yes (Other)
  Sender: MCGUFF
  Company Number: US-McGuff Pharmaceuticals, Inc.-2160554

PATIENT
  Age: 66 Year
  Sex: Male

DRUGS (3)
  1. ASCOR [Suspect]
     Active Substance: ASCORBIC ACID
     Indication: Clinical trial participant
     Route: 042
     Dates: start: 20211103, end: 20211103
  2. TRAMADOL [Concomitant]
     Active Substance: TRAMADOL\TRAMADOL HYDROCHLORIDE
  3. BUDESONIDE\FORMOTEROL FUMARATE [Concomitant]
     Active Substance: BUDESONIDE\FORMOTEROL FUMARATE

REACTIONS (3)
  - Pain in jaw [Recovered/Resolved]
  - Body temperature [Recovered/Resolved]
  - Pain [Recovered/Resolved]

NARRATIVE: CASE EVENT DATE: 20211103
